FAERS Safety Report 16700100 (Version 4)
Quarter: 2019Q3

REPORT INFORMATION
  Report Type: Report from Study
  Country: GT (occurrence: GT)
  Receive Date: 20190813
  Receipt Date: 20190824
  Transmission Date: 20191004
  Serious: No
  Sender: FDA-Public Use
  Company Number: PHHY2019GT183565

PATIENT
  Age: 77 Year
  Sex: Female
  Weight: 68.27 kg

DRUGS (3)
  1. DIOVAN [Suspect]
     Active Substance: VALSARTAN
     Indication: BLOOD PRESSURE INCREASED
     Dosage: 320 MG, QD
     Route: 065
  2. GALVUS MET [Suspect]
     Active Substance: METFORMIN HYDROCHLORIDE\VILDAGLIPTIN
     Dosage: (METFORMIN 500 MG, VILDAGLIPTIN 50 MG) (2 AND 1/2 YEARS AGO)
     Route: 065
  3. GALVUS MET [Suspect]
     Active Substance: METFORMIN HYDROCHLORIDE\VILDAGLIPTIN
     Indication: DIABETES MELLITUS
     Dosage: (METFORMIN 850 MG, VILDAGLIPTIN 50 MG)
     Route: 065

REACTIONS (2)
  - Gait disturbance [Unknown]
  - Malaise [Unknown]
